FAERS Safety Report 8499755-9 (Version None)
Quarter: 2012Q3

REPORT INFORMATION
  Report Type: 
  Country: None (occurrence: None)
  Receive Date: 20120710
  Receipt Date: 20120705
  Transmission Date: 20120928
  Serious: Yes (Other)
  Sender: FDA-Public Use
  Company Number: US-PFIZER INC-2012162271

PATIENT
  Sex: Male

DRUGS (1)
  1. SUTENT [Suspect]
     Indication: HEPATIC NEOPLASM MALIGNANT
     Dosage: 37.5 MG, 1X/DAY (12.5MG CAPS 3 CAPS DAILY)
     Dates: start: 20120606, end: 20120619

REACTIONS (1)
  - HAEMORRHAGE [None]
